FAERS Safety Report 18885857 (Version 1)
Quarter: 2021Q1

REPORT INFORMATION
  Report Type: Spontaneous
  Country: US (occurrence: US)
  Receive Date: 20210212
  Receipt Date: 20210212
  Transmission Date: 20210420
  Serious: Yes (Disabling)
  Sender: FDA-Public Use
  Company Number: None

PATIENT
  Age: 30 Year
  Sex: Female
  Weight: 69.75 kg

DRUGS (3)
  1. VIBERZI [Suspect]
     Active Substance: ELUXADOLINE
     Indication: ABDOMINAL PAIN
     Dosage: ?          QUANTITY:60 TABLET(S);?
     Route: 048
     Dates: start: 20210210, end: 20210212
  2. VYVANSE [Concomitant]
     Active Substance: LISDEXAMFETAMINE DIMESYLATE
  3. PROMETHAZINE [Concomitant]
     Active Substance: PROMETHAZINE HYDROCHLORIDE

REACTIONS (10)
  - Abdominal pain [None]
  - Dry mouth [None]
  - Fatigue [None]
  - Pancreatitis [None]
  - Nausea [None]
  - Asthenia [None]
  - Insomnia [None]
  - Constipation [None]
  - Presyncope [None]
  - Decreased appetite [None]

NARRATIVE: CASE EVENT DATE: 20210211
